FAERS Safety Report 10357917 (Version 1)
Quarter: 2014Q3

REPORT INFORMATION
  Report Type: Spontaneous
  Country: US (occurrence: None)
  Receive Date: 20140730
  Receipt Date: 20140730
  Transmission Date: 20150326
  Serious: Yes (Other)
  Sender: FDA-Public Use
  Company Number: SYM-2014-23532

PATIENT
  Age: 80 Year
  Sex: Female

DRUGS (1)
  1. XENAZINE [Suspect]
     Active Substance: TETRABENAZINE
     Indication: TORTICOLLIS
     Route: 048
     Dates: start: 20140623

REACTIONS (4)
  - Pallor [None]
  - Fatigue [None]
  - Abasia [None]
  - Muscular weakness [None]
